FAERS Safety Report 9213290 (Version 1)
Quarter: 2013Q2

REPORT INFORMATION
  Report Type: Spontaneous
  Country: BR (occurrence: BR)
  Receive Date: 20130405
  Receipt Date: 20130405
  Transmission Date: 20140414
  Serious: Yes (Other)
  Sender: FDA-Public Use
  Company Number: PHHY2012BR069312

PATIENT
  Age: 51 Year
  Sex: Female

DRUGS (3)
  1. HYDERGINE SRO [Suspect]
     Indication: AMNESIA
     Dosage: 1 DF, A DAY
     Route: 048
     Dates: start: 1981, end: 1982
  2. HYDERGINE SRO [Suspect]
     Dosage: 1 DF,
     Route: 048
  3. HYDERGINE SRO [Suspect]
     Dosage: 1 DF,
     Route: 048

REACTIONS (6)
  - Haemorrhage [Recovered/Resolved]
  - Uterine leiomyoma [Recovered/Resolved]
  - Syncope [Recovering/Resolving]
  - Anaemia [Recovered/Resolved]
  - Amnesia [Recovering/Resolving]
  - Loss of consciousness [Recovering/Resolving]
